FAERS Safety Report 10917681 (Version 2)
Quarter: 2015Q2

REPORT INFORMATION
  Report Type: Spontaneous
  Country: US (occurrence: None)
  Receive Date: 20150311
  Receipt Date: 20150414
  Transmission Date: 20150821
  Serious: Yes (Life-Threatening, Hospitalization)
  Sender: FDA-Public Use
  Company Number: 1713747-2015-99974

PATIENT
  Age: 72 Year
  Sex: Female
  Weight: 53.8 kg

DRUGS (16)
  1. COLACE [Concomitant]
     Active Substance: DOCUSATE SODIUM
  2. NOVOLOG [Concomitant]
     Active Substance: INSULIN ASPART
  3. PLAVIX [Concomitant]
     Active Substance: CLOPIDOGREL BISULFATE
  4. LACTULOSE. [Concomitant]
     Active Substance: LACTULOSE
  5. DELFLEX WITH DEXTROSE 2.5% LOW MAGNESIUM LOW CALCIUM [Suspect]
     Active Substance: CALCIUM CHLORIDE\DEXTROSE MONOHYDRATE\MAGNESIUM CHLORIDE\SODIUM CHLORIDE\SODIUM LACTATE
     Indication: CHRONIC KIDNEY DISEASE
     Route: 033
     Dates: start: 201311
  6. LANTUS [Concomitant]
     Active Substance: INSULIN GLARGINE
  7. ASPIRIN. [Concomitant]
     Active Substance: ASPIRIN
  8. COREG [Concomitant]
     Active Substance: CARVEDILOL
  9. LIPITOR [Concomitant]
     Active Substance: ATORVASTATIN CALCIUM
  10. LIBERTY CYCLER [Concomitant]
     Active Substance: DEVICE
  11. ADALAT [Concomitant]
     Active Substance: NIFEDIPINE
  12. ROCALTROL [Concomitant]
     Active Substance: CALCITRIOL
  13. RENVELA [Concomitant]
     Active Substance: SEVELAMER CARBONATE
  14. VITAMIN D3 [Concomitant]
     Active Substance: CHOLECALCIFEROL
  15. NIFEDIPINE. [Concomitant]
     Active Substance: NIFEDIPINE
  16. LIBERTY CYCLER SET [Concomitant]
     Active Substance: DEVICE

REACTIONS (3)
  - Cardiac failure congestive [None]
  - Fluid overload [None]
  - Acute myocardial infarction [None]

NARRATIVE: CASE EVENT DATE: 20150208
